FAERS Safety Report 8114232-2 (Version None)
Quarter: 2012Q1

REPORT INFORMATION
  Report Type: 
  Country: None (occurrence: None)
  Receive Date: 20120205
  Receipt Date: 20120123
  Transmission Date: 20120608
  Serious: Yes (Hospitalization)
  Sender: FDA-Public Use
  Company Number: FR-BRISTOL-MYERS SQUIBB COMPANY-16367401

PATIENT
  Age: 83 Year
  Sex: Male

DRUGS (10)
  1. ENALAPRIL MALEATE [Concomitant]
     Dosage: 1 IN THE MORNING; STARTED BEFORE 2008
  2. AVODART [Suspect]
     Indication: BENIGN PROSTATIC HYPERPLASIA
     Dosage: EVENING,AVODART 0.5 MG
     Route: 048
     Dates: start: 20080101, end: 20110802
  3. PLAVIX [Concomitant]
     Dosage: 1 AT NOON,  STARTED BEFORE 2008
  4. FORLAX [Concomitant]
     Dosage: STARTED BEFORE 2008
  5. ALUMINUM HYDROXIDE AND MAGNESIUM TRISILICATE [Concomitant]
     Dosage: STARTED BEFORE 2008
  6. PRAVASTATIN [Suspect]
     Indication: DYSLIPIDAEMIA
     Route: 048
     Dates: start: 20080101, end: 20110802
  7. DILTIAZEM HCL [Concomitant]
     Dosage: MONOTILDIEM 200 (DILTIAZEM)2/D 1IN THE MORNING AND 1 IN THE EVENING; STARTED BEFORE 2008
  8. NITROGLYCERIN [Concomitant]
     Dosage: DISCOTRINE 10; 1 PATCH PER DAY; STARTED BEFORE 2008
  9. ALFUZOSIN HCL [Concomitant]
     Dosage: 1 IN THE EVENING; STARTED BEFORE 2008
  10. ALDALIX [Concomitant]
     Dosage: ALDALIX 50/20 1 IN THE MORNING.

REACTIONS (4)
  - EOSINOPHILIA [None]
  - DIARRHOEA [None]
  - CYTOLYTIC HEPATITIS [None]
  - RENAL FAILURE [None]
